FAERS Safety Report 6652412-3 (Version None)
Quarter: 2010Q1

REPORT INFORMATION
  Report Type: 
  Country: None (occurrence: None)
  Receive Date: 20100323
  Receipt Date: 20100310
  Transmission Date: 20100710
  Serious: Yes (Hospitalization)
  Sender: FDA-Public Use
  Company Number: 232552J10USA

PATIENT
  Age: 22 Year
  Sex: Female
  Weight: 63 kg

DRUGS (4)
  1. REBIF [Suspect]
     Indication: MULTIPLE SCLEROSIS
     Dosage: 22 MCG, 3 IN 1 WEEKS, SUBCUTANEOUS
     Route: 058
     Dates: start: 20100210
  2. MULTIVITAMIN [Concomitant]
  3. LEXAPRO [Concomitant]
  4. MICROGESTIN (ANOVLAR) [Concomitant]

REACTIONS (6)
  - AMNESIA [None]
  - AURA [None]
  - DEJA VU [None]
  - GRAND MAL CONVULSION [None]
  - NAUSEA [None]
  - PALLOR [None]
